FAERS Safety Report 4386806-6 (Version None)
Quarter: 2004Q2

REPORT INFORMATION
  Report Type: 
  Country: None (occurrence: None)
  Receive Date: 20040607
  Receipt Date: 20031006
  Transmission Date: 20050107
  Serious: Yes (Other)
  Sender: FDA-Public Use
  Company Number: 348552

PATIENT
  Age: 44 Year
  Sex: Female
  Weight: 54.4 kg

DRUGS (2)
  1. ACCUTANE [Suspect]
     Indication: ACNE CYSTIC
     Dosage: 40 MG 1 PER DAY ORAL
     Route: 048
     Dates: start: 20030401, end: 20030515
  2. ISOTRETINOIN [Suspect]
     Indication: ACNE
     Dosage: 50 MG 1 PER DAY ORAL
     Route: 048
     Dates: start: 20030508, end: 20030605

REACTIONS (3)
  - DEPRESSION [None]
  - FATIGUE [None]
  - SOMNOLENCE [None]
